FAERS Safety Report 6997844 (Version 2)
Quarter: 2014Q3

REPORT INFORMATION
  Report Type: Spontaneous
  Country: US (occurrence: None)
  Receive Date: 20090512
  Receipt Date: 20140926
  Transmission Date: 20150326
  Serious: Yes (Other)
  Sender: FDA-Public Use
  Company Number: 2009S1003829

PATIENT
  Age: 65 Year
  Sex: Female

DRUGS (1)
  1. PHOSPHO-SODA [Suspect]
     Active Substance: SODIUM PHOSPHATE, DIBASIC\SODIUM PHOSPHATE, MONOBASIC
     Indication: COLONOSCOPY
     Dosage: PO
     Route: 048
     Dates: start: 20080317, end: 20080317

REACTIONS (7)
  - Renal failure acute [None]
  - Abdominal pain upper [None]
  - Chest pain [None]
  - Nausea [None]
  - Hypertension [None]
  - Hyperparathyroidism secondary [None]
  - Renal failure chronic [None]

NARRATIVE: CASE EVENT DATE: 200803
